FAERS Safety Report 8377613-8 (Version None)
Quarter: 2012Q2

REPORT INFORMATION
  Report Type: 
  Country: None (occurrence: None)
  Receive Date: 20120522
  Receipt Date: 20120518
  Transmission Date: 20120825
  Serious: Yes (Other)
  Sender: FDA-Public Use
  Company Number: US-PFIZER INC-2011247562

PATIENT
  Sex: Female
  Weight: 61 kg

DRUGS (4)
  1. PRISTIQ [Suspect]
     Indication: DEPRESSION
     Dosage: 100 MG, DAILY
     Dates: start: 20100701
  2. SYNTHROID [Concomitant]
     Indication: AUTOIMMUNE THYROIDITIS
     Dosage: 0.125 UG, DAILY
  3. LAMICTAL [Concomitant]
     Indication: DEPRESSION
     Dosage: 175 MG, DAILY
  4. PRISTIQ [Suspect]
     Dosage: 200 MG, DAILY AT NIGHT

REACTIONS (5)
  - WITHDRAWAL SYNDROME [None]
  - VOMITING [None]
  - DEHYDRATION [None]
  - MALAISE [None]
  - DIZZINESS [None]
